FAERS Safety Report 18924626 (Version 1)
Quarter: 2021Q1

REPORT INFORMATION
  Report Type: Spontaneous
  Country: US (occurrence: US)
  Receive Date: 20210222
  Receipt Date: 20210222
  Transmission Date: 20210420
  Serious: Yes (Death)
  Sender: FDA-Public Use
  Company Number: US-PFIZER INC-2019480484

PATIENT
  Age: 1 Year
  Sex: Female

DRUGS (2)
  1. LORBRENA [Suspect]
     Active Substance: LORLATINIB
     Indication: STEM CELL TRANSPLANT
     Dosage: 50 MG, DAILY
     Dates: start: 20191113
  2. LORBRENA [Suspect]
     Active Substance: LORLATINIB
     Indication: ADRENAL GLAND CANCER
     Dosage: 25 MG, DAILY

REACTIONS (3)
  - Off label use [Unknown]
  - Product use in unapproved indication [Unknown]
  - Death [Fatal]
